FAERS Safety Report 9087615 (Version 1)
Quarter: 2013Q1

REPORT INFORMATION
  Report Type: Spontaneous
  Country: FR (occurrence: FR)
  Receive Date: 20130217
  Receipt Date: 20130217
  Transmission Date: 20140127
  Serious: Yes (Hospitalization)
  Sender: FDA-Public Use
  Company Number: FR-BRISTOL-MYERS SQUIBB COMPANY-17363045

PATIENT
  Age: 63 Year
  Sex: Female

DRUGS (4)
  1. ORENCIA FOR INJ 250 MG/VIAL [Suspect]
     Indication: RHEUMATOID ARTHRITIS
     Dosage: 26JAN2012:12TH INF
     Route: 042
     Dates: start: 20110510, end: 20120126
  2. CORTANCYL [Suspect]
     Indication: RHEUMATOID ARTHRITIS
     Dosage: DECREASED
     Route: 048
  3. NAPROSYN [Suspect]
     Indication: RHEUMATOID ARTHRITIS
     Dosage: INCREASED TO 500MG
     Route: 048
  4. MABTHERA [Suspect]
     Indication: RHEUMATOID ARTHRITIS
     Dates: start: 201010, end: 201011

REACTIONS (3)
  - Peritonitis [Recovered/Resolved]
  - Intestinal perforation [Recovered/Resolved]
  - Sigmoiditis [Recovered/Resolved]
